FAERS Safety Report 22955279 (Version 2)
Quarter: 2023Q4

REPORT INFORMATION
  Report Type: Report from Study
  Country: JP (occurrence: JP)
  Receive Date: 20230918
  Receipt Date: 20231230
  Transmission Date: 20240110
  Serious: Yes (Other)
  Sender: FDA-Public Use
  Company Number: JP-TAKEDA-2020TJP021956

PATIENT
  Age: 50 Year
  Sex: Male
  Weight: 64.4 kg

DRUGS (11)
  1. LEUPLIN [Suspect]
     Active Substance: LEUPROLIDE ACETATE
     Indication: Bulbospinal muscular atrophy congenital
     Dosage: 11.25 MILLIGRAM, Q3MONTHS?1ST DOSE
     Route: 058
     Dates: start: 20180123, end: 20180123
  2. LEUPLIN [Suspect]
     Active Substance: LEUPROLIDE ACETATE
     Dosage: 2ND DOSE
     Route: 058
     Dates: start: 20180411, end: 20180411
  3. LEUPLIN [Suspect]
     Active Substance: LEUPROLIDE ACETATE
     Dosage: 3RD DOSE
     Route: 058
     Dates: start: 20180710, end: 20180710
  4. LEUPLIN [Suspect]
     Active Substance: LEUPROLIDE ACETATE
     Dosage: 4TH DOSE
     Route: 058
     Dates: start: 20180925, end: 20180925
  5. LEUPLIN [Suspect]
     Active Substance: LEUPROLIDE ACETATE
     Dosage: 5TH DOSE
     Route: 058
     Dates: start: 20181218, end: 20181218
  6. LEUPLIN [Suspect]
     Active Substance: LEUPROLIDE ACETATE
     Dosage: 6TH DOSE?11.25 MILLIGRAM
     Route: 058
     Dates: start: 20190319, end: 20190319
  7. KETOPROFEN [Concomitant]
     Active Substance: KETOPROFEN
     Indication: Bulbospinal muscular atrophy congenital
     Dosage: 20 MILLIGRAM
     Route: 065
     Dates: start: 20180411
  8. MICARDIS [Concomitant]
     Active Substance: TELMISARTAN
     Indication: Product used for unknown indication
     Dosage: 40 MILLIGRAM
     Route: 065
  9. NATEGLINIDE [Concomitant]
     Active Substance: NATEGLINIDE
     Indication: Product used for unknown indication
     Dosage: 270 MILLIGRAM
     Route: 065
     Dates: end: 20190617
  10. ZOLPIDEM TARTRATE [Concomitant]
     Active Substance: ZOLPIDEM TARTRATE
     Indication: Insomnia
     Dosage: 5 MILLIGRAM
     Route: 065
  11. AMLODIPINE BESYLATE [Concomitant]
     Active Substance: AMLODIPINE BESYLATE
     Indication: Hypertension
     Dosage: 2.5 MILLIGRAM
     Route: 065
     Dates: start: 20180411

REACTIONS (2)
  - Diabetes mellitus [Not Recovered/Not Resolved]
  - Blood creatine phosphokinase increased [Unknown]

NARRATIVE: CASE EVENT DATE: 20190709
